FAERS Safety Report 4598366-5 (Version None)
Quarter: 2005Q1

REPORT INFORMATION
  Report Type: 
  Country: None (occurrence: None)
  Receive Date: 20050302
  Receipt Date: 20050302
  Transmission Date: 20050727
  Serious: Yes (Hospitalization, Other)
  Sender: FDA-Public Use
  Company Number: None

PATIENT
  Sex: Male
  Weight: 109 kg

DRUGS (1)
  1. INTERERFERON-ALPHA [Suspect]
     Dosage: 9.0 NU SC 3X/WEEK. CYCLE = 4 WEEKS
     Route: 058
     Dates: start: 20041222

REACTIONS (5)
  - DISEASE PROGRESSION [None]
  - FEMUR FRACTURE [None]
  - GROIN PAIN [None]
  - METASTASIS [None]
  - RENAL CELL CARCINOMA STAGE UNSPECIFIED [None]
